FAERS Safety Report 7529596-8 (Version None)
Quarter: 2011Q2

REPORT INFORMATION
  Report Type: 
  Country: None (occurrence: None)
  Receive Date: 20110607
  Receipt Date: 20110603
  Transmission Date: 20111010
  Serious: Yes (Death)
  Sender: FDA-Public Use
  Company Number: US-B.I. PHARMACEUTICALS,INC./RIDGEFIELD-2011-BP-14620BP

PATIENT
  Sex: Female

DRUGS (5)
  1. RYTHMOL [Concomitant]
     Indication: ATRIAL FIBRILLATION
     Dosage: 675 MG
     Route: 048
  2. DILTIAZEM [Concomitant]
     Dosage: 240 MG
     Route: 048
  3. DOXYCYCLINE [Concomitant]
     Dosage: 200 MG
     Route: 048
  4. LEVOTHYROXINE SODIUM [Concomitant]
     Indication: HYPOTHYROIDISM
     Dosage: 137 MCG
     Route: 048
  5. PRADAXA [Suspect]
     Indication: ATRIAL FIBRILLATION
     Dosage: 300 MG
     Route: 048
     Dates: start: 20110401

REACTIONS (4)
  - HAEMATOCHEZIA [None]
  - HERPES ZOSTER [None]
  - EMBOLIC STROKE [None]
  - BLOOD URINE PRESENT [None]
